FAERS Safety Report 9116861 (Version 1)
Quarter: 2013Q1

REPORT INFORMATION
  Report Type: Spontaneous
  Country: BR (occurrence: BR)
  Receive Date: 20130225
  Receipt Date: 20130225
  Transmission Date: 20140127
  Serious: Yes (Hospitalization, Other)
  Sender: FDA-Public Use
  Company Number: PHHY2013BR005909

PATIENT
  Sex: Female
  Weight: 54 kg

DRUGS (8)
  1. LUDIOMIL [Suspect]
     Indication: DEPRESSION
     Dosage: 0.5 DF, DAILY
     Route: 048
     Dates: end: 20120426
  2. TEGRETOL [Suspect]
     Dosage: UNK UKN, UNK
  3. TEGRETOL CR [Suspect]
     Indication: TRIGEMINAL NEURALGIA
     Dosage: 2 DF, Q6H
     Route: 048
     Dates: start: 2000
  4. LEXOTAN [Suspect]
     Indication: ANXIETY
     Dosage: 0.5 DF, DAILY
     Route: 048
     Dates: end: 20120426
  5. LYRICA [Concomitant]
     Indication: HYPOAESTHESIA
     Dosage: 1 DF, Q12H
     Route: 048
  6. NEURONTIN [Concomitant]
     Indication: HYPOAESTHESIA
     Dosage: UNK UKN, UNK
  7. PURAN T4 [Concomitant]
     Indication: HYPOTHYROIDISM
     Dosage: 1 DF, DAILY
     Route: 048
  8. EXELON [Concomitant]
     Dosage: UNK UKN, UNK

REACTIONS (18)
  - Salivary hypersecretion [Unknown]
  - Dry mouth [Unknown]
  - Hypothyroidism [Not Recovered/Not Resolved]
  - Nasal discomfort [Unknown]
  - Cataract [Recovered/Resolved]
  - Body height decreased [Not Recovered/Not Resolved]
  - Hunger [Unknown]
  - Limb asymmetry [Unknown]
  - Bone lesion [Unknown]
  - Wrong technique in drug usage process [Unknown]
  - Anxiety [Unknown]
  - Confusional state [Unknown]
  - Dizziness [Recovered/Resolved]
  - Hallucination, visual [Unknown]
  - Nausea [Recovered/Resolved]
  - Trigeminal neuralgia [Recovered/Resolved with Sequelae]
  - Hypoaesthesia [Unknown]
  - Ocular hyperaemia [Unknown]
